FAERS Safety Report 15448813 (Version 1)
Quarter: 2018Q3

REPORT INFORMATION
  Report Type: Report from Study
  Country: JP (occurrence: JP)
  Receive Date: 20180929
  Receipt Date: 20180929
  Transmission Date: 20181010
  Serious: Yes (Hospitalization)
  Sender: FDA-Public Use
  Company Number: PHHO2000JP01636

PATIENT
  Age: 27 Year
  Sex: Male

DRUGS (10)
  1. SANDIMMUN INFUSION [Suspect]
     Active Substance: CYCLOSPORINE
     Dosage: 280 MG, UNK
     Route: 041
     Dates: start: 20000220, end: 20000220
  2. METHYLPREDNISOLONE (METHYLPREDNISOLONE) [Suspect]
     Active Substance: METHYLPREDNISOLONE
     Dosage: 500 MG, UNK
     Route: 042
     Dates: start: 20000221
  3. METHYLPREDNISOLONE (METHYLPREDNISOLONE) [Suspect]
     Active Substance: METHYLPREDNISOLONE
     Dosage: 500 MG, UNK
     Route: 042
     Dates: start: 20000225
  4. SANDIMMUN INFUSION [Suspect]
     Active Substance: CYCLOSPORINE
     Dosage: 140 MG, UNK
     Route: 041
     Dates: start: 20000221, end: 20000305
  5. SIMULECT [Suspect]
     Active Substance: BASILIXIMAB
     Dosage: 20 MG, UNK
     Route: 042
     Dates: start: 20000131, end: 20000204
  6. SIMULECT [Suspect]
     Active Substance: BASILIXIMAB
     Indication: RENAL TRANSPLANT
     Dosage: 20 MG, UNK
     Route: 042
     Dates: start: 20000131
  7. SANDIMMUN INFUSION [Suspect]
     Active Substance: CYCLOSPORINE
     Indication: PROPHYLAXIS AGAINST TRANSPLANT REJECTION
     Dosage: 280 MG, UNK
     Route: 041
     Dates: start: 20000131, end: 20000202
  8. SANDIMMUNE [Suspect]
     Active Substance: CYCLOSPORINE
     Indication: PROPHYLAXIS AGAINST TRANSPLANT REJECTION
     Dosage: 800 MG?150 MG
     Route: 048
     Dates: start: 20000130, end: 20000220
  9. SANDIMMUNE [Suspect]
     Active Substance: CYCLOSPORINE
     Dosage: 200?500 MG
     Route: 048
     Dates: start: 20000305
  10. METHYLPREDNISOLONE (METHYLPREDNISOLONE) [Suspect]
     Active Substance: METHYLPREDNISOLONE
     Indication: RENAL TRANSPLANT
     Dosage: 500 MG, UNK
     Route: 042
     Dates: start: 20000220

REACTIONS (15)
  - Pneumonia [Recovered/Resolved]
  - Blood urea increased [Recovered/Resolved]
  - Blood urea increased [Recovered/Resolved]
  - Protein urine [Recovered/Resolved]
  - C-reactive protein increased [Recovered/Resolved]
  - Nasopharyngitis [Recovered/Resolved]
  - Renal disorder [Not Recovered/Not Resolved]
  - C-reactive protein increased [Recovered/Resolved]
  - Pyrexia [Recovered/Resolved]
  - Blood creatinine increased [Recovered/Resolved]
  - Pyrexia [Recovered/Resolved]
  - Pyelonephritis [Recovered/Resolved]
  - Blood lactate dehydrogenase increased [Recovered/Resolved]
  - White blood cell count increased [Recovered/Resolved]
  - Glucose urine [Recovered/Resolved]

NARRATIVE: CASE EVENT DATE: 20000218
